FAERS Safety Report 5390060-6 (Version None)
Quarter: 2007Q3

REPORT INFORMATION
  Report Type: 
  Country: None (occurrence: None)
  Receive Date: 20070718
  Receipt Date: 20070705
  Transmission Date: 20080115
  Serious: Yes (Life-Threatening, Hospitalization)
  Sender: FDA-Public Use
  Company Number: FR-AMGEN-US221632

PATIENT
  Sex: Female
  Weight: 105 kg

DRUGS (2)
  1. ENBREL [Suspect]
     Indication: PUSTULAR PSORIASIS
     Route: 058
     Dates: start: 20061205, end: 20061212
  2. ENBREL [Suspect]
     Route: 058
     Dates: start: 20070118, end: 20070415

REACTIONS (10)
  - CIRCULATORY COLLAPSE [None]
  - ERYSIPELAS [None]
  - GASTROENTERITIS [None]
  - LACTIC ACIDOSIS [None]
  - METABOLIC ACIDOSIS [None]
  - PNEUMONIA STAPHYLOCOCCAL [None]
  - PO2 DECREASED [None]
  - RENAL FAILURE [None]
  - TOXIC SHOCK SYNDROME STAPHYLOCOCCAL [None]
  - WEIGHT DECREASED [None]
